FAERS Safety Report 22066558 (Version 1)
Quarter: 2023Q1

REPORT INFORMATION
  Report Type: Spontaneous
  Country: US (occurrence: US)
  Receive Date: 20230306
  Receipt Date: 20230306
  Transmission Date: 20230417
  Serious: No
  Sender: FDA-Public Use
  Company Number: US-INSUD PHARMA-2303US01185

PATIENT

DRUGS (1)
  1. VIENVA TM [Suspect]
     Active Substance: ETHINYL ESTRADIOL\LEVONORGESTREL
     Indication: Product used for unknown indication
     Dosage: UNK
     Route: 048
     Dates: start: 202206

REACTIONS (9)
  - Anger [Not Recovered/Not Resolved]
  - Impatience [Not Recovered/Not Resolved]
  - Irritability [Not Recovered/Not Resolved]
  - Hormone level abnormal [Not Recovered/Not Resolved]
  - Foreign body in throat [Unknown]
  - Product use complaint [Unknown]
  - Product blister packaging issue [Unknown]
  - Product container issue [Unknown]
  - Product substitution issue [Unknown]

NARRATIVE: CASE EVENT DATE: 20220101
